FAERS Safety Report 25053556 (Version 1)
Quarter: 2025Q1

REPORT INFORMATION
  Report Type: Spontaneous
  Country: US (occurrence: US)
  Receive Date: 20250307
  Receipt Date: 20250307
  Transmission Date: 20250408
  Serious: Yes (Other)
  Sender: SANOFI AVENTIS
  Company Number: US-SA-2025SA064808

PATIENT
  Age: 40 Year
  Sex: Female

DRUGS (1)
  1. LUMIZYME [Suspect]
     Active Substance: ALGLUCOSIDASE ALFA
     Indication: Glycogen storage disease type II
     Dates: start: 201802

REACTIONS (6)
  - Glomerulonephritis membranous [Unknown]
  - Proteinuria [Unknown]
  - Hypertension [Unknown]
  - Drug specific antibody present [Not Recovered/Not Resolved]
  - Infusion related reaction [Unknown]
  - Drug ineffective [Unknown]

NARRATIVE: CASE EVENT DATE: 20180101
